FAERS Safety Report 17997440 (Version 2)
Quarter: 2020Q3

REPORT INFORMATION
  Report Type: Report from Study
  Country: US (occurrence: US)
  Receive Date: 20200708
  Receipt Date: 20200806
  Transmission Date: 20201103
  Serious: Yes (Hospitalization)
  Sender: FDA-Public Use
  Company Number: US-ACTELION-A-NJ2020-204333

PATIENT
  Sex: Female
  Weight: 120.64 kg

DRUGS (1)
  1. UPTRAVI [Suspect]
     Active Substance: SELEXIPAG
     Indication: PULMONARY ARTERIAL HYPERTENSION
     Dosage: 200 MCG, BID
     Route: 048

REACTIONS (15)
  - Weight increased [Unknown]
  - Weight decreased [Unknown]
  - Oedema [Unknown]
  - Dyspnoea [Unknown]
  - Headache [Unknown]
  - Paranasal sinus hypersecretion [Unknown]
  - Head discomfort [Unknown]
  - Decreased appetite [Unknown]
  - Hypoacusis [Unknown]
  - Stress [Unknown]
  - Peripheral swelling [Unknown]
  - Tinnitus [Unknown]
  - Abdominal discomfort [Unknown]
  - Nausea [Unknown]
  - Sinus disorder [Unknown]
